FAERS Safety Report 6880990-8 (Version None)
Quarter: 2010Q2

REPORT INFORMATION
  Report Type: 
  Country: None (occurrence: None)
  Receive Date: 20100630
  Receipt Date: 20100322
  Transmission Date: 20101027
  Serious: Yes (Other)
  Sender: FDA-Public Use
  Company Number: DEP_00351_2010

PATIENT
  Age: 54 Year
  Sex: Female

DRUGS (3)
  1. CIPROFLOXACIN [Suspect]
     Indication: PYELONEPHRITIS
     Dosage: (DF)
  2. CIPROFLOXACIN [Suspect]
     Indication: URINARY TRACT INFECTION
     Dosage: (DF)
  3. LEVOFLOXACIN [Suspect]
     Indication: URINARY TRACT INFECTION
     Dosage: (DF)

REACTIONS (1)
  - DRUG ERUPTION [None]
